FAERS Safety Report 9005507 (Version 1)
Quarter: 2013Q1

REPORT INFORMATION
  Report Type: Spontaneous
  Country: PE (occurrence: PE)
  Receive Date: 20130109
  Receipt Date: 20130109
  Transmission Date: 20140127
  Serious: Yes (Other)
  Sender: FDA-Public Use
  Company Number: PE-PFIZER INC-2013009304

PATIENT
  Age: 28 Year
  Sex: Female

DRUGS (1)
  1. ZELDOX [Suspect]
     Dosage: UNK
     Route: 048

REACTIONS (1)
  - Arrhythmia [Unknown]
